FAERS Safety Report 19782489 (Version 4)
Quarter: 2021Q4

REPORT INFORMATION
  Report Type: Spontaneous
  Country: US (occurrence: US)
  Receive Date: 20210902
  Receipt Date: 20211018
  Transmission Date: 20220303
  Serious: No
  Sender: FDA-Public Use
  Company Number: US-DSJP-DSU-2021-128563

PATIENT
  Age: 62 Year
  Sex: Male

DRUGS (4)
  1. TURALIO [Suspect]
     Active Substance: PEXIDARTINIB HYDROCHLORIDE
     Indication: Neoplasm skin
     Dosage: 400 MG, BID
     Route: 048
     Dates: start: 20210818
  2. ASPIRIN [Concomitant]
     Active Substance: ASPIRIN
     Indication: Product used for unknown indication
     Dosage: 81 MG, QD
     Route: 065
  3. LISINOPRIL [Concomitant]
     Active Substance: LISINOPRIL
     Indication: Product used for unknown indication
     Dosage: 10 MG, QD
     Route: 065
  4. LOVASTATIN [Concomitant]
     Active Substance: LOVASTATIN
     Indication: Product used for unknown indication
     Dosage: 40 MG, QD
     Route: 065

REACTIONS (7)
  - Rash [Unknown]
  - Decreased appetite [Unknown]
  - Fatigue [Unknown]
  - Pyrexia [Unknown]
  - Nausea [Unknown]
  - Vomiting [Unknown]
  - Liver function test abnormal [Unknown]

NARRATIVE: CASE EVENT DATE: 20210829
